FAERS Safety Report 5118435-0 (Version None)
Quarter: 2006Q4

REPORT INFORMATION
  Report Type: 
  Country: None (occurrence: None)
  Receive Date: 20061002
  Receipt Date: 20060922
  Transmission Date: 20070319
  Serious: Yes (Other)
  Sender: FDA-Public Use
  Company Number: US-JNJFOC-20060905956

PATIENT
  Sex: Male
  Weight: 104.33 kg

DRUGS (5)
  1. FENTANYL TRANSDERMAL SYSTEM [Suspect]
     Indication: BACK PAIN
     Route: 062
  2. DOXAZOSIN [Concomitant]
     Indication: HYPERTENSION
     Route: 048
  3. DIOVAN [Concomitant]
     Indication: HYPERTENSION
     Route: 048
  4. DICLOFENAC [Concomitant]
     Indication: ANTIINFLAMMATORY THERAPY
     Route: 048
  5. LEXAPRO [Concomitant]
     Indication: DEPRESSION
     Route: 048

REACTIONS (2)
  - DRUG EFFECT DECREASED [None]
  - HYPOTHYROIDISM [None]
